FAERS Safety Report 10733938 (Version 1)
Quarter: 2015Q1

REPORT INFORMATION
  Report Type: Spontaneous
  Country: US (occurrence: None)
  Receive Date: 20150121
  Receipt Date: 20150121
  Transmission Date: 20150721
  Serious: Yes (Other)
  Sender: FDA-Public Use
  Company Number: 2015VER00019

PATIENT
  Age: 15 Year
  Sex: Male

DRUGS (2)
  1. CLARAVIS [Suspect]
     Active Substance: ISOTRETINOIN
     Indication: ACNE
     Dates: start: 201411, end: 2014
  2. MYORISAN [Suspect]
     Active Substance: ISOTRETINOIN
     Indication: ACNE
     Dates: end: 201410

REACTIONS (3)
  - Ligament rupture [None]
  - Activities of daily living impaired [None]
  - Depressed mood [None]

NARRATIVE: CASE EVENT DATE: 2014
